FAERS Safety Report 20147951 (Version 2)
Quarter: 2022Q1

REPORT INFORMATION
  Report Type: Report from Study
  Country: CA (occurrence: CA)
  Receive Date: 20211204
  Receipt Date: 20220104
  Transmission Date: 20220423
  Serious: Yes (Hospitalization)
  Sender: FDA-Public Use
  Company Number: CA-ABBVIE-21K-028-3885704-00

PATIENT
  Sex: Female

DRUGS (3)
  1. HUMIRA [Suspect]
     Active Substance: ADALIMUMAB
     Indication: Crohn^s disease
     Route: 058
     Dates: start: 20210219, end: 2021
  2. HUMIRA [Suspect]
     Active Substance: ADALIMUMAB
     Indication: Psoriatic arthropathy
     Dosage: DOSE INCREASED
     Route: 058
  3. COVID-19 VACCINE [Concomitant]
     Indication: COVID-19 immunisation
     Route: 030
     Dates: start: 20210413, end: 20210413

REACTIONS (20)
  - Decreased appetite [Recovering/Resolving]
  - Frequent bowel movements [Recovering/Resolving]
  - Anorectal discomfort [Not Recovered/Not Resolved]
  - Anorectal disorder [Not Recovered/Not Resolved]
  - Rectal discharge [Not Recovered/Not Resolved]
  - Chills [Recovering/Resolving]
  - Anorectal discomfort [Unknown]
  - Intestinal mass [Unknown]
  - Haemorrhoids [Not Recovered/Not Resolved]
  - Haematochezia [Not Recovered/Not Resolved]
  - Arteriosclerosis [Not Recovered/Not Resolved]
  - Flatulence [Not Recovered/Not Resolved]
  - Diarrhoea [Recovering/Resolving]
  - Vomiting [Recovering/Resolving]
  - Abdominal pain upper [Recovering/Resolving]
  - Drug level decreased [Recovering/Resolving]
  - Unevaluable event [Not Recovered/Not Resolved]
  - Dehydration [Recovering/Resolving]
  - Psoriasis [Unknown]
  - Therapeutic product effect incomplete [Unknown]

NARRATIVE: CASE EVENT DATE: 20210101
